FAERS Safety Report 17592841 (Version 2)
Quarter: 2021Q4

REPORT INFORMATION
  Report Type: Spontaneous
  Country: US (occurrence: US)
  Receive Date: 20200327
  Receipt Date: 20211018
  Transmission Date: 20220303
  Serious: Yes (Other)
  Sender: FDA-Public Use
  Company Number: US-BIOMARINAP-US-2020-129246

PATIENT
  Sex: Female

DRUGS (1)
  1. KUVAN [Suspect]
     Active Substance: SAPROPTERIN DIHYDROCHLORIDE
     Indication: Phenylketonuria
     Dosage: 20 MILLIGRAM/KILOGRAM
     Route: 065

REACTIONS (3)
  - Breast cancer stage I [Unknown]
  - Metastases to lung [Unknown]
  - Metastases to liver [Unknown]
